FAERS Safety Report 4667901-0 (Version None)
Quarter: 2005Q2

REPORT INFORMATION
  Report Type: 
  Country: None (occurrence: None)
  Receive Date: 20050520
  Receipt Date: 20050520
  Transmission Date: 20051028
  Serious: No
  Sender: FDA-Public Use
  Company Number: None

PATIENT
  Sex: Male
  Weight: 68.6 kg

DRUGS (3)
  1. CISPLATIN [Suspect]
     Indication: SMALL CELL LUNG CANCER STAGE UNSPECIFIED
     Dosage: 60 MG/M2 FOR 4 CYCLES GIVEN WITH IRINOTECAN
     Dates: start: 20050411
  2. IRINOTECAN [Suspect]
     Dosage: 50 MG/M2 WITH RADIATION AND 60 MG/M2 AFTER RADIATION COMPLETED
  3. RADIOTHERAPY [Suspect]

REACTIONS (6)
  - CONFUSIONAL STATE [None]
  - FATIGUE [None]
  - HAEMOGLOBIN DECREASED [None]
  - NEUTROPHIL COUNT DECREASED [None]
  - ORAL CANDIDIASIS [None]
  - PNEUMONIA [None]
